FAERS Safety Report 25685626 (Version 1)
Quarter: 2025Q3

REPORT INFORMATION
  Report Type: Spontaneous
  Country: GB (occurrence: GB)
  Receive Date: 20250815
  Receipt Date: 20250815
  Transmission Date: 20251021
  Serious: Yes (Death, Hospitalization, Other)
  Sender: MYLAN
  Company Number: None

PATIENT
  Age: 64 Year
  Sex: Male

DRUGS (20)
  1. GABAPENTIN [Suspect]
     Active Substance: GABAPENTIN
     Indication: Product used for unknown indication
     Dosage: 300 MILLIGRAM, TID (300MG TDS)
  2. GABAPENTIN [Suspect]
     Active Substance: GABAPENTIN
     Dosage: 300 MILLIGRAM, TID (300MG TDS)
     Route: 065
  3. GABAPENTIN [Suspect]
     Active Substance: GABAPENTIN
     Dosage: 300 MILLIGRAM, TID (300MG TDS)
     Route: 065
  4. GABAPENTIN [Suspect]
     Active Substance: GABAPENTIN
     Dosage: 300 MILLIGRAM, TID (300MG TDS)
  5. NEFOPAM [Suspect]
     Active Substance: NEFOPAM
     Indication: Product used for unknown indication
     Dosage: 30 MILLIGRAM, TID (30MG TDS)
  6. NEFOPAM [Suspect]
     Active Substance: NEFOPAM
     Dosage: 30 MILLIGRAM, TID (30MG TDS)
     Route: 065
  7. NEFOPAM [Suspect]
     Active Substance: NEFOPAM
     Dosage: 30 MILLIGRAM, TID (30MG TDS)
     Route: 065
  8. NEFOPAM [Suspect]
     Active Substance: NEFOPAM
     Dosage: 30 MILLIGRAM, TID (30MG TDS)
  9. SERTRALINE [Suspect]
     Active Substance: SERTRALINE HYDROCHLORIDE
     Indication: Product used for unknown indication
     Dosage: 150 MILLIGRAM, QD (150MG OD)
  10. SERTRALINE [Suspect]
     Active Substance: SERTRALINE HYDROCHLORIDE
     Dosage: 150 MILLIGRAM, QD (150MG OD)
     Route: 065
  11. SERTRALINE [Suspect]
     Active Substance: SERTRALINE HYDROCHLORIDE
     Dosage: 150 MILLIGRAM, QD (150MG OD)
     Route: 065
  12. SERTRALINE [Suspect]
     Active Substance: SERTRALINE HYDROCHLORIDE
     Dosage: 150 MILLIGRAM, QD (150MG OD)
  13. OXYCODONE HYDROCHLORIDE [Suspect]
     Active Substance: OXYCODONE HYDROCHLORIDE
     Indication: Pain
     Dosage: 100 MILLIGRAM, BID (40MG BD)
  14. OXYCODONE HYDROCHLORIDE [Suspect]
     Active Substance: OXYCODONE HYDROCHLORIDE
     Dosage: 100 MILLIGRAM, BID (40MG BD)
     Route: 065
  15. OXYCODONE HYDROCHLORIDE [Suspect]
     Active Substance: OXYCODONE HYDROCHLORIDE
     Dosage: 100 MILLIGRAM, BID (40MG BD)
     Route: 065
  16. OXYCODONE HYDROCHLORIDE [Suspect]
     Active Substance: OXYCODONE HYDROCHLORIDE
     Dosage: 100 MILLIGRAM, BID (40MG BD)
  17. METHOCARBAMOL [Suspect]
     Active Substance: METHOCARBAMOL
     Indication: Product used for unknown indication
     Dosage: 1500 MILLIGRAM, PM (1500MG ON)
  18. METHOCARBAMOL [Suspect]
     Active Substance: METHOCARBAMOL
     Dosage: 1500 MILLIGRAM, PM (1500MG ON)
     Route: 065
  19. METHOCARBAMOL [Suspect]
     Active Substance: METHOCARBAMOL
     Dosage: 1500 MILLIGRAM, PM (1500MG ON)
     Route: 065
  20. METHOCARBAMOL [Suspect]
     Active Substance: METHOCARBAMOL
     Dosage: 1500 MILLIGRAM, PM (1500MG ON)

REACTIONS (5)
  - Cardiac arrest [Fatal]
  - Muscle rigidity [Unknown]
  - Serotonin syndrome [Not Recovered/Not Resolved]
  - Hypertension [Unknown]
  - Pyrexia [Unknown]

NARRATIVE: CASE EVENT DATE: 20250720
